FAERS Safety Report 4644202-8 (Version None)
Quarter: 2005Q2

REPORT INFORMATION
  Report Type: 
  Country: None (occurrence: None)
  Receive Date: 20050331
  Receipt Date: 20050106
  Transmission Date: 20051028
  Serious: No
  Sender: FDA-Public Use
  Company Number: 05P-163-0285713-00

PATIENT
  Age: 77 Year
  Sex: Male
  Weight: 105 kg

DRUGS (7)
  1. HUMIRA [Suspect]
     Indication: RHEUMATOID ARTHRITIS
     Dosage: 40 MG, 1 IN 2 WK, SUBCUTANEOUS
     Route: 058
     Dates: start: 20041001
  2. ROFECOXIB [Concomitant]
  3. MELOXICAM [Concomitant]
  4. FUROSEMIDE [Concomitant]
  5. METHADONE HCL [Concomitant]
  6. HYALURONATE SODIUM [Concomitant]
  7. GLIPIZIDE [Concomitant]

REACTIONS (2)
  - INJECTION SITE SWELLING [None]
  - INJECTION SITE VESICLES [None]
